FAERS Safety Report 24608834 (Version 1)
Quarter: 2024Q4

REPORT INFORMATION
  Report Type: Spontaneous
  Country: US (occurrence: US)
  Receive Date: 20241112
  Receipt Date: 20241112
  Transmission Date: 20250114
  Serious: No
  Sender: Alora Pharma
  Company Number: US-ACELLA PHARMACEUTICALS, LLC-2023ALO00051

PATIENT
  Sex: Female
  Weight: 63.946 kg

DRUGS (3)
  1. CICLOPIROX [Suspect]
     Active Substance: CICLOPIROX
     Indication: Onychomycosis
     Dosage: APPLY, 1X/DAY AT BEDTIME
     Route: 061
     Dates: start: 202308
  2. UNSPECIFIED HIGH BLOOD PRESSURE PILL [Concomitant]
  3. VITAMINS NOS [Concomitant]
     Active Substance: VITAMINS

REACTIONS (2)
  - Blister [Not Recovered/Not Resolved]
  - Nail discolouration [Not Recovered/Not Resolved]

NARRATIVE: CASE EVENT DATE: 20230101
